FAERS Safety Report 5117378-6 (Version None)
Quarter: 2006Q3

REPORT INFORMATION
  Report Type: 
  Country: None (occurrence: None)
  Receive Date: 20060926
  Receipt Date: 20060907
  Transmission Date: 20061208
  Serious: Yes (Other)
  Sender: FDA-Public Use
  Company Number: US200608006636

PATIENT
  Age: 86 Year
  Sex: Female

DRUGS (4)
  1. FORTEO [Suspect]
     Indication: OSTEOPOROSIS
     Dosage: 20 UG,
     Dates: start: 20060601
  2. FORETO PEN (250 MCG/ML) (FORETO PEN 250MCG/ML (3ML)) [Concomitant]
  3. IMDUR [Concomitant]
  4. PLENDIL /SWE/ (FELODIPINE) [Concomitant]

REACTIONS (3)
  - BLOOD PRESSURE DECREASED [None]
  - BREAST CANCER FEMALE [None]
  - HEART RATE DECREASED [None]
